FAERS Safety Report 10235852 (Version 2)
Quarter: 2014Q3

REPORT INFORMATION
  Report Type: Spontaneous
  Country: US (occurrence: US)
  Receive Date: 20140613
  Receipt Date: 20140714
  Transmission Date: 20150326
  Serious: No
  Sender: FDA-Public Use
  Company Number: US-009507513-1406USA000361

PATIENT
  Sex: Female

DRUGS (1)
  1. IMPLANON [Suspect]
     Active Substance: ETONOGESTREL
     Dosage: 68 MG/ ONCE EVERY THREE YEARS
     Route: 059
     Dates: start: 201309

REACTIONS (2)
  - Implant site haemorrhage [Unknown]
  - Device kink [Unknown]

NARRATIVE: CASE EVENT DATE: 201309
